FAERS Safety Report 25577956 (Version 1)
Quarter: 2025Q3

REPORT INFORMATION
  Report Type: Spontaneous
  Country: US (occurrence: US)
  Receive Date: 20250718
  Receipt Date: 20250718
  Transmission Date: 20251021
  Serious: No
  Sender: BAYER HEALTHCARE LLC
  Company Number: US-BAYER-2025A093153

PATIENT
  Age: 80 Year
  Sex: Female

DRUGS (2)
  1. LOTRIMIN ULTRA [Suspect]
     Active Substance: BUTENAFINE HYDROCHLORIDE
     Route: 061
     Dates: end: 20250712
  2. BIOTIN [Concomitant]
     Active Substance: BIOTIN

REACTIONS (2)
  - Skin burning sensation [Recovered/Resolved]
  - Musculoskeletal stiffness [Recovered/Resolved]
